FAERS Safety Report 21867629 (Version 1)
Quarter: 2023Q1

REPORT INFORMATION
  Report Type: Spontaneous
  Country: BE (occurrence: BE)
  Receive Date: 20230116
  Receipt Date: 20230116
  Transmission Date: 20230418
  Serious: Yes (Hospitalization, Other)
  Sender: FDA-Public Use
  Company Number: None

PATIENT

DRUGS (3)
  1. DICLOFENAC DIETHYLAMINE [Suspect]
     Active Substance: DICLOFENAC DIETHYLAMINE
     Indication: Arthralgia
     Dosage: UNK (SEVERAL TIME /DAY)
     Route: 003
     Dates: start: 20220101, end: 20220420
  2. XARELTO [Concomitant]
     Active Substance: RIVAROXABAN
     Indication: Arthralgia
     Dosage: 1 DF, QD
  3. PRAZEPAM [Concomitant]
     Active Substance: PRAZEPAM
     Indication: Arthralgia
     Dosage: UNK

REACTIONS (2)
  - Rectal haemorrhage [Recovering/Resolving]
  - Gastric haemorrhage [Recovering/Resolving]

NARRATIVE: CASE EVENT DATE: 20220418
